FAERS Safety Report 4387919-5 (Version None)
Quarter: 2004Q2

REPORT INFORMATION
  Report Type: 
  Country: None (occurrence: None)
  Receive Date: 20040607
  Receipt Date: 20031211
  Transmission Date: 20050107
  Serious: Yes (Hospitalization)
  Sender: FDA-Public Use
  Company Number: 353999

PATIENT
  Age: 18 Year
  Sex: Female

DRUGS (4)
  1. ACCUTANE [Suspect]
     Indication: ACNE CYSTIC
     Dosage: 40 MG DAILY  ORAL
     Route: 048
     Dates: start: 19970304, end: 19970603
  2. PROZAC [Concomitant]
  3. LITHIUM (LITHIUM NOS) [Concomitant]
  4. DEPO-PROVERA [Concomitant]

REACTIONS (2)
  - ABNORMAL BEHAVIOUR [None]
  - DEPRESSION [None]
